FAERS Safety Report 12165975 (Version 1)
Quarter: 2016Q1

REPORT INFORMATION
  Report Type: Spontaneous
  Country: US (occurrence: US)
  Receive Date: 20160309
  Receipt Date: 20160309
  Transmission Date: 20160526
  Serious: Yes (Other)
  Sender: FDA-Public Use
  Company Number: US-ELI_LILLY_AND_COMPANY-US201602010130

PATIENT
  Sex: Female

DRUGS (4)
  1. HUMULIN N [Suspect]
     Active Substance: INSULIN HUMAN
     Dosage: 20 U, EACH MORNING
     Route: 065
  2. HUMULIN N [Suspect]
     Active Substance: INSULIN HUMAN
     Indication: TYPE 1 DIABETES MELLITUS
     Dosage: UNK, BID
     Route: 065
     Dates: start: 19930226
  3. NOVOLOG [Concomitant]
     Active Substance: INSULIN ASPART
     Dosage: UNK, UNKNOWN
     Route: 065
  4. HUMULIN N [Suspect]
     Active Substance: INSULIN HUMAN
     Dosage: 20 U, EACH EVENING
     Route: 065

REACTIONS (6)
  - Cardiac failure [Not Recovered/Not Resolved]
  - Memory impairment [Unknown]
  - Atrial fibrillation [Unknown]
  - Visual acuity reduced [Not Recovered/Not Resolved]
  - Cataract [Unknown]
  - Injury associated with device [Unknown]

NARRATIVE: CASE EVENT DATE: 2012
